FAERS Safety Report 9524606 (Version 1)
Quarter: 2013Q3

REPORT INFORMATION
  Report Type: Spontaneous
  Country: US (occurrence: None)
  Receive Date: 20130912
  Receipt Date: 20130912
  Transmission Date: 20140515
  Serious: No
  Sender: FDA-Public Use
  Company Number: None

PATIENT
  Age: 66 Year
  Sex: Male
  Weight: 80.74 kg

DRUGS (6)
  1. AMOXICILLIN + CLAVULANATE POTASSIUM [Suspect]
     Indication: COUGH
     Dosage: AMOXICILLIN 875 MG, 1 TABLET?CLAVULANATE 125 MG
     Route: 048
     Dates: start: 20130719, end: 20130723
  2. AMOXICILLIN + CLAVULANATE POTASSIUM [Suspect]
     Indication: PYREXIA
     Dosage: AMOXICILLIN 875 MG, 1 TABLET?CLAVULANATE 125 MG
     Route: 048
     Dates: start: 20130719, end: 20130723
  3. LISINOPRIL- HCTZ [Concomitant]
  4. CRESTOR [Concomitant]
  5. ADVAIR [Concomitant]
  6. NASONEX [Concomitant]

REACTIONS (4)
  - Rash [None]
  - Blister rupture [None]
  - Haemorrhage [None]
  - Blister [None]
